FAERS Safety Report 16498783 (Version 1)
Quarter: 2019Q2

REPORT INFORMATION
  Report Type: Spontaneous
  Country: US (occurrence: US)
  Receive Date: 20190520
  Receipt Date: 20190520
  Transmission Date: 20190711
  Serious: Yes (Hospitalization)
  Sender: FDA-Public Use
  Company Number: None

PATIENT
  Age: 63 Year
  Sex: Male

DRUGS (6)
  1. ACTEMRA [Suspect]
     Active Substance: TOCILIZUMAB
     Indication: ARTERITIS
     Route: 058
     Dates: start: 20181211
  2. PROPRANOLOL [Concomitant]
     Active Substance: PROPRANOLOL HYDROCHLORIDE
  3. TRAZODONE [Concomitant]
     Active Substance: TRAZODONE HYDROCHLORIDE
  4. SEROQUEL [Concomitant]
     Active Substance: QUETIAPINE FUMARATE
  5. ASPIRIN. [Concomitant]
     Active Substance: ASPIRIN
  6. LITHIUM. [Concomitant]
     Active Substance: LITHIUM

REACTIONS (4)
  - Urticaria [None]
  - Drug hypersensitivity [None]
  - Peripheral swelling [None]
  - Infection [None]

NARRATIVE: CASE EVENT DATE: 201904
